FAERS Safety Report 9989825 (Version 1)
Quarter: 2014Q1

REPORT INFORMATION
  Report Type: Report from Study
  Country: US (occurrence: US)
  Receive Date: 20140310
  Receipt Date: 20140310
  Transmission Date: 20141002
  Serious: No
  Sender: FDA-Public Use
  Company Number: US-ABBVIE-13P-163-1130133-00

PATIENT
  Age: 41 Year
  Sex: Female

DRUGS (6)
  1. HUMIRA [Suspect]
     Indication: CROHN^S DISEASE
     Dates: start: 20130329
  2. PRILOSEC [Concomitant]
     Indication: GASTROOESOPHAGEAL REFLUX DISEASE
  3. PROMETHAZINE [Concomitant]
     Indication: NAUSEA
  4. NORTRIPTYLINE [Concomitant]
     Indication: DEPRESSION
  5. TYLENOL [Concomitant]
     Indication: HEADACHE
  6. IMITREX [Concomitant]
     Indication: MIGRAINE

REACTIONS (3)
  - Neoplasm [Not Recovered/Not Resolved]
  - Hypoaesthesia [Not Recovered/Not Resolved]
  - Paraesthesia [Not Recovered/Not Resolved]
